FAERS Safety Report 19746168 (Version 1)
Quarter: 2021Q3

REPORT INFORMATION
  Report Type: Spontaneous
  Country: BE (occurrence: BE)
  Receive Date: 20210826
  Receipt Date: 20210826
  Transmission Date: 20211014
  Serious: Yes (Hospitalization, Other)
  Sender: FDA-Public Use
  Company Number: BE-SUN PHARMACEUTICAL INDUSTRIES LTD-2021R1-306454

PATIENT
  Age: 33 Year
  Sex: Female

DRUGS (8)
  1. LORAZEPAM. [Interacting]
     Active Substance: LORAZEPAM
     Dosage: 2.5 MILLIGRAM, DAILY
     Route: 065
  2. ARIPIPRAZOLE. [Concomitant]
     Active Substance: ARIPIPRAZOLE
     Indication: PRODUCT USED FOR UNKNOWN INDICATION
     Dosage: 15 MG
     Route: 065
  3. VALPROIC ACID. [Interacting]
     Active Substance: VALPROIC ACID
     Indication: EPILEPSY
  4. CLOZAPINE. [Concomitant]
     Active Substance: CLOZAPINE
     Indication: PRODUCT USED FOR UNKNOWN INDICATION
     Dosage: 50 MG
     Route: 065
  5. LORAZEPAM. [Interacting]
     Active Substance: LORAZEPAM
     Indication: CATATONIA
     Dosage: HIGH DOSE
     Route: 042
  6. LITHIUM. [Concomitant]
     Active Substance: LITHIUM
     Indication: PRODUCT USED FOR UNKNOWN INDICATION
     Dosage: 600 MG
     Route: 065
  7. LORAZEPAM. [Interacting]
     Active Substance: LORAZEPAM
     Dosage: 7 MILLIGRAM, DAILY
     Route: 042
  8. VALPROIC ACID. [Suspect]
     Active Substance: VALPROIC ACID
     Indication: CATATONIA
     Dosage: 800 MILLIGRAM, DAILY
     Route: 065

REACTIONS (3)
  - Metabolic encephalopathy [Unknown]
  - Stupor [Unknown]
  - Drug interaction [Unknown]
